FAERS Safety Report 20344351 (Version 3)
Quarter: 2023Q1

REPORT INFORMATION
  Report Type: Report from Study
  Country: JP (occurrence: JP)
  Receive Date: 20220118
  Receipt Date: 20230323
  Transmission Date: 20230418
  Serious: Yes (Hospitalization, Other)
  Sender: FDA-Public Use
  Company Number: JP-GLAXOSMITHKLINE-JP2022JPN007538

PATIENT

DRUGS (47)
  1. MEPOLIZUMAB [Suspect]
     Active Substance: MEPOLIZUMAB
     Indication: Eosinophilic granulomatosis with polyangiitis
     Dosage: 300 MG
     Dates: start: 20190411, end: 20190411
  2. MEPOLIZUMAB [Suspect]
     Active Substance: MEPOLIZUMAB
     Dosage: 300 MG
     Dates: start: 20190509, end: 20190509
  3. MEPOLIZUMAB [Suspect]
     Active Substance: MEPOLIZUMAB
     Dosage: 300 MG
     Dates: start: 20190606, end: 20190606
  4. MEPOLIZUMAB [Suspect]
     Active Substance: MEPOLIZUMAB
     Dosage: 300 MG
     Dates: start: 20190704, end: 20190704
  5. MEPOLIZUMAB [Suspect]
     Active Substance: MEPOLIZUMAB
     Dosage: 300 MG
     Dates: start: 20190801, end: 20190801
  6. MEPOLIZUMAB [Suspect]
     Active Substance: MEPOLIZUMAB
     Dosage: 300 MG
     Dates: start: 20191206, end: 20191206
  7. MEPOLIZUMAB [Suspect]
     Active Substance: MEPOLIZUMAB
     Dosage: 300 MG
     Dates: start: 20200109, end: 20200109
  8. MEPOLIZUMAB [Suspect]
     Active Substance: MEPOLIZUMAB
     Dosage: 300 MG
     Dates: start: 20200206, end: 20200206
  9. MEPOLIZUMAB [Suspect]
     Active Substance: MEPOLIZUMAB
     Dosage: 300 MG
     Dates: start: 20200305, end: 20200305
  10. MEPOLIZUMAB [Suspect]
     Active Substance: MEPOLIZUMAB
     Dosage: 300 MG
     Dates: start: 20200402, end: 20200402
  11. MEPOLIZUMAB [Suspect]
     Active Substance: MEPOLIZUMAB
     Dosage: 300 MG
     Dates: start: 20200430, end: 20200430
  12. MEPOLIZUMAB [Suspect]
     Active Substance: MEPOLIZUMAB
     Dosage: 300 MG
     Dates: start: 20200528, end: 20200528
  13. MEPOLIZUMAB [Suspect]
     Active Substance: MEPOLIZUMAB
     Dosage: 300 MG
     Dates: start: 20200625, end: 20200625
  14. MEPOLIZUMAB [Suspect]
     Active Substance: MEPOLIZUMAB
     Dosage: 300 MG
     Dates: start: 20200820, end: 20200820
  15. MEPOLIZUMAB [Suspect]
     Active Substance: MEPOLIZUMAB
     Dosage: 300 MG
     Dates: start: 20200917, end: 20200917
  16. MEPOLIZUMAB [Suspect]
     Active Substance: MEPOLIZUMAB
     Dosage: 300 MG
     Dates: start: 20201015, end: 20201015
  17. MEPOLIZUMAB [Suspect]
     Active Substance: MEPOLIZUMAB
     Dosage: 300 MG
     Dates: start: 20201112, end: 20201112
  18. MEPOLIZUMAB [Suspect]
     Active Substance: MEPOLIZUMAB
     Dosage: 300 MG
     Dates: start: 20201210, end: 20201210
  19. MEPOLIZUMAB [Suspect]
     Active Substance: MEPOLIZUMAB
     Dosage: 300 MG
     Dates: start: 20210107, end: 20210107
  20. MEPOLIZUMAB [Suspect]
     Active Substance: MEPOLIZUMAB
     Dosage: 300 MG
     Dates: start: 20210204, end: 20210204
  21. FLUTICASONE FUROATE\VILANTEROL TRIFENATATE [Suspect]
     Active Substance: FLUTICASONE FUROATE\VILANTEROL TRIFENATATE
     Dosage: 200 ?G, 1D
     Route: 055
  22. PREDNISOLONE [Suspect]
     Active Substance: PREDNISOLONE
     Indication: Eosinophilic granulomatosis with polyangiitis
     Dosage: 5 MG, 1D
  23. PREDNISOLONE [Suspect]
     Active Substance: PREDNISOLONE
     Dosage: 1 MG, 1D
     Dates: end: 20200402
  24. RABEPRAZOLE SODIUM [Concomitant]
     Active Substance: RABEPRAZOLE SODIUM
     Indication: Prophylaxis
     Dosage: UNK
  25. AIMIX COMBINATION HD TABLETS [Concomitant]
  26. SODIUM FERROUS CITRATE [Concomitant]
     Active Substance: SODIUM FERROUS CITRATE
     Dosage: UNK
  27. JUVELA [Concomitant]
     Active Substance: .ALPHA.-TOCOPHEROL\RETINOL
     Indication: Eosinophilic granulomatosis with polyangiitis
     Dosage: UNK
  28. REBAMIPIDE [Concomitant]
     Active Substance: REBAMIPIDE
     Indication: Prophylaxis
  29. SINGULAIR OD [Concomitant]
     Dosage: UNK
  30. BEPOTASTINE BESYLATE [Concomitant]
     Active Substance: BEPOTASTINE BESYLATE
     Dosage: UNK
  31. ETIZOLAM [Concomitant]
     Active Substance: ETIZOLAM
     Dosage: UNK
  32. THEOPHYLLINE ANHYDROUS [Concomitant]
     Active Substance: THEOPHYLLINE ANHYDROUS
     Dosage: UNK
  33. MINODRONIC ACID [Concomitant]
     Active Substance: MINODRONIC ACID
     Indication: Prophylaxis
     Dosage: UNK
  34. SHAKUYAKUKANZOTO EXTRACT [Concomitant]
     Indication: Eosinophilic granulomatosis with polyangiitis
     Dosage: UNK
  35. METHYLCOBALAMIN [Concomitant]
     Active Substance: METHYLCOBALAMIN
     Indication: Eosinophilic granulomatosis with polyangiitis
     Dosage: UNK
  36. SPIRIVA RESPIMAT [Concomitant]
     Active Substance: TIOTROPIUM BROMIDE
     Dosage: UNK
  37. LYRICA [Concomitant]
     Active Substance: PREGABALIN
     Indication: Eosinophilic granulomatosis with polyangiitis
     Dosage: UNK
  38. CALCIUM SULFATE\HERBALS [Concomitant]
     Active Substance: CALCIUM SULFATE\HERBALS
     Indication: Eosinophilic granulomatosis with polyangiitis
     Dosage: UNK
  39. GOREISAN EXTRACT GRANULES [Concomitant]
     Indication: Eosinophilic granulomatosis with polyangiitis
     Dosage: UNK
  40. TOKAKUJOKITO [Concomitant]
     Indication: Eosinophilic granulomatosis with polyangiitis
     Dosage: UNK
  41. LAMICTAL [Concomitant]
     Active Substance: LAMOTRIGINE
     Dosage: UNK
  42. REFLEX [Concomitant]
     Active Substance: MIRTAZAPINE
     Dosage: UNK
  43. BELSOMRA [Concomitant]
     Active Substance: SUVOREXANT
     Dosage: UNK
  44. TARLIGE TABLETS [Concomitant]
     Indication: Eosinophilic granulomatosis with polyangiitis
     Dosage: UNK
  45. HERBALS [Concomitant]
     Active Substance: HERBALS
     Indication: Eosinophilic granulomatosis with polyangiitis
     Dosage: UNK
  46. TSUMURA POWDERED PROCESSED ACONITE ROOT [Concomitant]
     Indication: Eosinophilic granulomatosis with polyangiitis
     Dosage: UNK
  47. ALLOPURINOL [Concomitant]
     Active Substance: ALLOPURINOL
     Indication: Hyperuricaemia
     Dosage: UNK

REACTIONS (2)
  - Femur fracture [Recovered/Resolved]
  - Inappropriate schedule of product administration [Unknown]

NARRATIVE: CASE EVENT DATE: 20190819
